FAERS Safety Report 17224883 (Version 1)
Quarter: 2020Q1

REPORT INFORMATION
  Report Type: Report from Study
  Country: GB (occurrence: GB)
  Receive Date: 20200102
  Receipt Date: 20200102
  Transmission Date: 20200409
  Serious: Yes (Hospitalization)
  Sender: FDA-Public Use
  Company Number: GB-ROCHE-2508244

PATIENT
  Age: 4 Year
  Sex: Female

DRUGS (3)
  1. OXYGEN. [Concomitant]
     Active Substance: OXYGEN
     Indication: OXYGEN SATURATION
     Dosage: UNK
     Route: 065
  2. RANIBIZUMAB. [Suspect]
     Active Substance: RANIBIZUMAB
     Indication: RETINOPATHY OF PREMATURITY
     Dosage: 0.2 MG (EACH EYE)
     Route: 031
     Dates: start: 20160225, end: 20160225
  3. ANTACIDS, OTHER COMBINATIONS [Concomitant]
     Active Substance: ANTACIDS NOS
     Indication: GASTROOESOPHAGEAL REFLUX DISEASE
     Dosage: UNK
     Route: 065
     Dates: start: 20160302

REACTIONS (5)
  - Lower respiratory tract infection [Recovering/Resolving]
  - Respiratory syncytial virus infection [Recovering/Resolving]
  - Pulmonary hypertension [Unknown]
  - Bronchitis [Recovered/Resolved with Sequelae]
  - Upper respiratory tract infection [Recovered/Resolved]

NARRATIVE: CASE EVENT DATE: 20170318
